FAERS Safety Report 14510808 (Version 1)
Quarter: 2018Q1

REPORT INFORMATION
  Report Type: Report from Study
  Country: US (occurrence: US)
  Receive Date: 20180209
  Receipt Date: 20180209
  Transmission Date: 20180509
  Serious: Yes (Other)
  Sender: FDA-Public Use
  Company Number: US-PFIZER INC-2018046129

PATIENT
  Age: 35 Year
  Sex: Male
  Weight: 86.17 kg

DRUGS (15)
  1. DIPHENHYDRAMINE. [Concomitant]
     Active Substance: DIPHENHYDRAMINE
     Indication: PROPHYLAXIS
     Dosage: 25 MG, Q6H PRN
     Route: 048
     Dates: start: 20170910, end: 20170912
  2. DOCUSATE SODIUM. [Concomitant]
     Active Substance: DOCUSATE SODIUM
     Indication: CONSTIPATION PROPHYLAXIS
     Dosage: 100 MG, Q12H
     Route: 048
     Dates: start: 20170809, end: 20170909
  3. FOLIC ACID. [Concomitant]
     Active Substance: FOLIC ACID
     Indication: SICKLE CELL DISEASE
     Dosage: 1 MG, DAILY
     Route: 048
     Dates: start: 20170828
  4. ENOXAPARIN [Concomitant]
     Active Substance: ENOXAPARIN
     Indication: THROMBOSIS PROPHYLAXIS
     Dosage: 40 MG, DAILY
     Route: 058
     Dates: start: 20170909, end: 20170913
  5. PERI-COLACE /00071801/ [Concomitant]
     Indication: CONSTIPATION PROPHYLAXIS
     Dosage: 2 TAB, 2X/DAY
     Route: 048
     Dates: start: 20170910, end: 20170911
  6. SODIUM CHLORIDE. [Suspect]
     Active Substance: SODIUM CHLORIDE
     Indication: SICKLE CELL ANAEMIA WITH CRISIS
     Dosage: UNK
     Route: 042
     Dates: start: 201709
  7. MORPHINE [Concomitant]
     Active Substance: MORPHINE
     Indication: PAIN MANAGEMENT
     Dosage: 30 MG, Q12H PRN
     Route: 048
     Dates: start: 20170910, end: 20170912
  8. PERCOCET [Concomitant]
     Active Substance: ACETAMINOPHEN\OXYCODONE HYDROCHLORIDE
     Indication: PAIN MANAGEMENT
     Dosage: 1 TABLET, Q6H PRN
     Route: 048
     Dates: start: 20170912, end: 20170913
  9. KETOROLAC [Concomitant]
     Active Substance: KETOROLAC\KETOROLAC TROMETHAMINE
     Indication: ANTIINFLAMMATORY THERAPY
     Dosage: 30 MG, ONE TIME
     Route: 042
     Dates: start: 20170909, end: 20170909
  10. TRAZODONE [Concomitant]
     Active Substance: TRAZODONE HYDROCHLORIDE
     Indication: INSOMNIA
     Dosage: 50 MG, HS
     Route: 048
     Dates: start: 20170912, end: 20170912
  11. PF-06460031 [Suspect]
     Active Substance: RIVIPANSEL
     Indication: SICKLE CELL DISEASE
     Dosage: 840 MG, 12 HOURLY
     Route: 042
     Dates: start: 20170910, end: 20170912
  12. HYDROXYUREA. [Concomitant]
     Active Substance: HYDROXYUREA
     Indication: SICKLE CELL DISEASE
     Dosage: 1500 MG, DAILY
     Route: 048
     Dates: start: 20170828
  13. OXYCODONE [Concomitant]
     Active Substance: OXYCODONE
     Indication: PAIN MANAGEMENT
     Dosage: 30 MG, AS NEEDED
     Route: 048
     Dates: start: 20170828
  14. QUETIAPINE. [Concomitant]
     Active Substance: QUETIAPINE
     Indication: PSYCHOTIC DISORDER
     Dosage: 25 MG, DAILY
     Route: 048
     Dates: start: 20170911, end: 20170911
  15. SERTRALINE [Concomitant]
     Active Substance: SERTRALINE HYDROCHLORIDE
     Indication: DEPRESSION
     Dosage: 50 MG, DAILY
     Route: 048
     Dates: start: 20170912, end: 20170913

REACTIONS (1)
  - Infusion site vesicles [Recovered/Resolved]

NARRATIVE: CASE EVENT DATE: 20170912
